FAERS Safety Report 10253899 (Version 2)
Quarter: 2014Q2

REPORT INFORMATION
  Report Type: Report from Study
  Country: US (occurrence: US)
  Receive Date: 20140623
  Receipt Date: 20140623
  Transmission Date: 20141212
  Serious: Yes (Other)
  Sender: FDA-Public Use
  Company Number: US-ABBVIE-12P-163-0977751-00

PATIENT
  Age: 55 Year
  Sex: Female
  Weight: 63.11 kg

DRUGS (13)
  1. HUMIRA [Suspect]
     Indication: RHEUMATOID ARTHRITIS
     Dates: start: 2010, end: 20120906
  2. HUMIRA [Suspect]
     Indication: RHEUMATOID ARTHRITIS
     Dates: start: 20120907, end: 20120907
  3. METHOTREXATE [Concomitant]
     Indication: RHEUMATOID ARTHRITIS
     Dosage: 10 PILLS WEEKLY
  4. PREDNISONE [Concomitant]
     Indication: RHEUMATOID ARTHRITIS
     Dosage: UP TO 20 MG IF HAVING FLARE
  5. NEXIUM [Concomitant]
     Indication: GASTROOESOPHAGEAL REFLUX DISEASE
  6. FLONASE [Concomitant]
     Indication: HYPERSENSITIVITY
     Dosage: 2 SPRAYS IN EACH NOSTRIL
  7. REQUIP [Concomitant]
     Indication: RESTLESS LEGS SYNDROME
  8. TRAMADOL [Concomitant]
     Indication: PAIN
  9. FOLIC ACID [Concomitant]
     Indication: PRODUCT USED FOR UNKNOWN INDICATION
  10. ALBUTEROL SULFATE [Concomitant]
     Indication: WHEEZING
     Dosage: AS NEEDED
  11. TYLENOL [Concomitant]
     Indication: PAIN
     Dosage: 2 TABLETS AS NEEDED
  12. CALCIUM WITH VITAMIN D [Concomitant]
     Indication: PRODUCT USED FOR UNKNOWN INDICATION
     Dosage: 800-1000MG EVERY DAY
  13. CLONAZEPAM [Concomitant]
     Indication: PANIC ATTACK

REACTIONS (20)
  - Pulmonary mass [Not Recovered/Not Resolved]
  - Expired product administered [Recovered/Resolved]
  - Injection site pain [Not Recovered/Not Resolved]
  - Nasopharyngitis [Not Recovered/Not Resolved]
  - Nasal congestion [Not Recovered/Not Resolved]
  - Cough [Not Recovered/Not Resolved]
  - Night sweats [Not Recovered/Not Resolved]
  - Insomnia [Not Recovered/Not Resolved]
  - Feeling drunk [Not Recovered/Not Resolved]
  - Panic attack [Recovered/Resolved]
  - Feeling jittery [Recovered/Resolved]
  - Nervousness [Recovered/Resolved]
  - Skin oedema [Not Recovered/Not Resolved]
  - Pruritus [Recovering/Resolving]
  - Bronchospasm [Not Recovered/Not Resolved]
  - Hypersensitivity [Not Recovered/Not Resolved]
  - Expired product administered [Not Recovered/Not Resolved]
  - Urticaria [Unknown]
  - Chest discomfort [Unknown]
  - Rheumatoid arthritis [Recovering/Resolving]
